FAERS Safety Report 17258204 (Version 4)
Quarter: 2021Q4

REPORT INFORMATION
  Report Type: Spontaneous
  Country: FR (occurrence: FR)
  Receive Date: 20200110
  Receipt Date: 20211110
  Transmission Date: 20220303
  Serious: Yes (Other)
  Sender: FDA-Public Use
  Company Number: FR-ASTELLAS-2018US040639

PATIENT
  Age: 39 Year
  Sex: Female
  Weight: 55 kg

DRUGS (19)
  1. BENDAMUSTINE HYDROCHLORIDE [Suspect]
     Active Substance: BENDAMUSTINE HYDROCHLORIDE
     Indication: Chronic lymphocytic leukaemia
     Dosage: UNK, CYCLE
     Route: 042
  2. VORICONAZOLE [Suspect]
     Active Substance: VORICONAZOLE
     Indication: Aspergillus infection
     Dosage: UNK (300 X 2, REDUCED TO 200 MG B.I.D.)
     Route: 048
  3. VORICONAZOLE [Suspect]
     Active Substance: VORICONAZOLE
     Indication: Cerebral aspergillosis
     Dosage: 400 MG THREE TIMES A DAY [T.I.D.]; 7 MG/KG T.I.D.
  4. VORICONAZOLE [Suspect]
     Active Substance: VORICONAZOLE
     Dosage: 650 MG PER DAY DIVIDED INTO 2 INTAKES
     Route: 048
  5. VORICONAZOLE [Suspect]
     Active Substance: VORICONAZOLE
     Dosage: 300 MILLIGRAM, QD
  6. VORICONAZOLE [Suspect]
     Active Substance: VORICONAZOLE
     Dosage: 650 MILLIGRAM, QD (300 MG, BID)
     Route: 048
  7. VORICONAZOLE [Suspect]
     Active Substance: VORICONAZOLE
     Dosage: 400 MILLIGRAM, QD (200 MG, BID)
     Route: 048
  8. VORICONAZOLE [Suspect]
     Active Substance: VORICONAZOLE
     Dosage: 7 MILLIGRAM/KILOGRAM
  9. VORICONAZOLE [Suspect]
     Active Substance: VORICONAZOLE
     Dosage: 1200 MILLIGRAM, QD (400 MG, TID)
  10. VORICONAZOLE [Suspect]
     Active Substance: VORICONAZOLE
     Dosage: UNK (2 WEEKS OF L-AMB IN COMBINATION WITH VCZ FOLLOWED BY VCZ MONOTHERAPY)
  11. VORICONAZOLE [Suspect]
     Active Substance: VORICONAZOLE
     Indication: Aspergillus infection
     Dosage: UNK
     Route: 042
  12. VORICONAZOLE [Suspect]
     Active Substance: VORICONAZOLE
     Indication: Cerebral aspergillosis
  13. AMPHOTERICIN B [Suspect]
     Active Substance: AMPHOTERICIN B
     Indication: Aspergillus infection
     Dosage: UNK (FOR 2 WEEKS)
  14. AMPHOTERICIN B [Suspect]
     Active Substance: AMPHOTERICIN B
     Indication: Cerebral aspergillosis
  15. ISAVUCONAZOLE [Suspect]
     Active Substance: ISAVUCONAZOLE
     Indication: Cerebral aspergillosis
     Dosage: 300 MILLIGRAM, QD
     Route: 065
  16. ISAVUCONAZOLE [Suspect]
     Active Substance: ISAVUCONAZOLE
     Dosage: 200 MILLIGRAM, QD
     Route: 065
  17. CASPOFUNGIN [Concomitant]
     Active Substance: CASPOFUNGIN
     Indication: Aspergillus infection
     Dosage: 150 MG/DAY (HIGH DOSE)
  18. CASPOFUNGIN [Concomitant]
     Active Substance: CASPOFUNGIN
     Indication: Cerebral aspergillosis
  19. BENDAMUSTINE [Concomitant]
     Active Substance: BENDAMUSTINE
     Indication: Chronic lymphocytic leukaemia
     Dosage: UNK UNK, CYCLE
     Route: 042

REACTIONS (13)
  - Cerebral aspergillosis [Unknown]
  - Generalised tonic-clonic seizure [Unknown]
  - Neutropenia [Recovered/Resolved]
  - Cholestasis [Unknown]
  - Drug level below therapeutic [Unknown]
  - Treatment failure [Unknown]
  - Drug level decreased [Unknown]
  - Hepatic cytolysis [Unknown]
  - Intentional overdose [Unknown]
  - Infection [Unknown]
  - Drug ineffective [Unknown]
  - Prescribed overdose [Unknown]
  - Off label use [Unknown]
